FAERS Safety Report 7780179-4 (Version None)
Quarter: 2011Q3

REPORT INFORMATION
  Report Type: 
  Country: None (occurrence: None)
  Receive Date: 20110927
  Receipt Date: 20110927
  Transmission Date: 20111222
  Serious: Yes (Hospitalization)
  Sender: FDA-Public Use
  Company Number: None

PATIENT
  Age: 85 Year
  Sex: Female

DRUGS (1)
  1. PRADAXA [Suspect]
     Indication: ATRIAL FIBRILLATION
     Dosage: 150 MG
     Route: 048
     Dates: start: 20110809, end: 20110919

REACTIONS (5)
  - DYSPNOEA [None]
  - PNEUMONIA [None]
  - DEEP VEIN THROMBOSIS [None]
  - ASTHENIA [None]
  - CARDIAC FAILURE CONGESTIVE [None]
